FAERS Safety Report 8476821-5 (Version None)
Quarter: 2012Q2

REPORT INFORMATION
  Report Type: 
  Country: None (occurrence: None)
  Receive Date: 20120629
  Receipt Date: 20120618
  Transmission Date: 20120825
  Serious: Yes (Other)
  Sender: FDA-Public Use
  Company Number: BR-AMGEN-BRASP2012038860

PATIENT
  Age: 61 Year
  Sex: Female
  Weight: 61 kg

DRUGS (10)
  1. ENBREL [Suspect]
     Indication: RHEUMATOID ARTHRITIS
     Dosage: 50 MG, WEEKLY
     Route: 058
     Dates: start: 20120401
  2. SIMVASTATIN [Concomitant]
     Dosage: 20 MG, 1X/DAY, 1 TABLET
  3. HYDROCHLOROTHIAZIDE [Concomitant]
     Dosage: 25 MG, 1X/DAY, 1 TABLET
  4. METHOTREXATE [Concomitant]
     Dosage: 15 MG, WEEKLY, 6 TABLETS
  5. CAPTOPRIL [Concomitant]
     Dosage: 25 MG, 2X/DAY, 1 TABLET
  6. CORTIZONE                          /00028601/ [Concomitant]
     Dosage: 7.5 MG, 2X/DAY
  7. OMEPRAZOLE [Concomitant]
     Dosage: 20 MG, 1X/DAY, 1 TABLET
  8. FOLIC ACID [Concomitant]
     Dosage: 1 TABLET, 2X/WEEK
  9. MEFENAMIC ACID [Concomitant]
     Indication: PAIN
     Dosage: UNK
  10. ATENOLOL [Concomitant]
     Dosage: 50 MG, 1X/DAY, 1 TABLET

REACTIONS (9)
  - OEDEMA PERIPHERAL [None]
  - INJECTION SITE SWELLING [None]
  - PAIN IN EXTREMITY [None]
  - FOOT DEFORMITY [None]
  - LIMB DISCOMFORT [None]
  - INJECTION SITE ERYTHEMA [None]
  - SENSORY LOSS [None]
  - ARTHRALGIA [None]
  - JOINT SWELLING [None]
